FAERS Safety Report 4703917-3 (Version None)
Quarter: 2005Q2

REPORT INFORMATION
  Report Type: 
  Country: None (occurrence: None)
  Receive Date: 20050628
  Receipt Date: 20050614
  Transmission Date: 20051028
  Serious: Yes (Hospitalization, Other)
  Sender: FDA-Public Use
  Company Number: USA050599270

PATIENT
  Age: 78 Year
  Sex: Female

DRUGS (5)
  1. CYMBALTA [Suspect]
     Indication: PAIN
     Dosage: 60 MG DAY
  2. LASIX (FUROSEMIDE/00032601/) [Concomitant]
  3. ALDACTONE [Concomitant]
  4. COUMADIN [Concomitant]
  5. LANOXIN (DIGOXIN/00017701/) [Concomitant]

REACTIONS (6)
  - DRUG INTERACTION [None]
  - FALL [None]
  - HEAD INJURY [None]
  - INJURY [None]
  - LOSS OF CONSCIOUSNESS [None]
  - ORTHOSTATIC HYPOTENSION [None]
